FAERS Safety Report 9369386 (Version 1)
Quarter: 2013Q2

REPORT INFORMATION
  Report Type: Spontaneous
  Country: US (occurrence: None)
  Receive Date: 20130625
  Receipt Date: 20130625
  Transmission Date: 20140414
  Serious: No
  Sender: FDA-Public Use
  Company Number: None

PATIENT
  Age: 63 Year
  Sex: Female
  Weight: 85.73 kg

DRUGS (1)
  1. CLONIDINE [Suspect]
     Indication: HYPERTENSION
     Dosage: 1 DAY ONCE WEEKLY
     Route: 062
     Dates: start: 20110725, end: 201108

REACTIONS (2)
  - Product adhesion issue [None]
  - Incorrect dose administered [None]
